FAERS Safety Report 7893305-3 (Version None)
Quarter: 2011Q4

REPORT INFORMATION
  Report Type: 
  Country: None (occurrence: None)
  Receive Date: 20111104
  Receipt Date: 20111028
  Transmission Date: 20120403
  Serious: Yes (Hospitalization)
  Sender: FDA-Public Use
  Company Number: US-PFIZER INC-2011265991

PATIENT
  Sex: Female

DRUGS (1)
  1. XALKORI [Suspect]
     Indication: LUNG NEOPLASM MALIGNANT
     Dosage: 250 MG, 2X/DAY
     Dates: start: 20110907, end: 20110927

REACTIONS (7)
  - DIARRHOEA [None]
  - ASTHENIA [None]
  - BLOOD POTASSIUM INCREASED [None]
  - RENAL FAILURE [None]
  - DIZZINESS [None]
  - DECREASED APPETITE [None]
  - VOMITING [None]
